FAERS Safety Report 4389595-4 (Version None)
Quarter: 2004Q2

REPORT INFORMATION
  Report Type: 
  Country: None (occurrence: None)
  Receive Date: 20040629
  Receipt Date: 20040218
  Transmission Date: 20050107
  Serious: Yes (Other)
  Sender: FDA-Public Use
  Company Number: US-JNJFOC-20040204500

PATIENT
  Age: 49 Year
  Sex: Female

DRUGS (5)
  1. DURAGESIC [Suspect]
     Indication: PAIN
     Dosage: 25,50 UG/HR, 1 IN 72 HOUR, TRANSDERMAL
     Route: 062
     Dates: start: 20031201, end: 20040101
  2. DURAGESIC [Suspect]
     Indication: PAIN
     Dosage: 25,50 UG/HR, 1 IN 72 HOUR, TRANSDERMAL
     Route: 062
     Dates: start: 20040101
  3. EFFEXOR [Concomitant]
  4. ATENOLOL [Concomitant]
  5. KLONOPIN [Concomitant]

REACTIONS (3)
  - CONFUSIONAL STATE [None]
  - NAUSEA [None]
  - SYNCOPE [None]
